FAERS Safety Report 12217957 (Version 2)
Quarter: 2016Q1

REPORT INFORMATION
  Report Type: Spontaneous
  Country: US (occurrence: US)
  Receive Date: 20160329
  Receipt Date: 20160331
  Transmission Date: 20160526
  Serious: Yes (Other)
  Sender: FDA-Public Use
  Company Number: US-TEVA-645615USA

PATIENT
  Age: 64 Year
  Sex: Female
  Weight: 52.21 kg

DRUGS (6)
  1. ACTIQ [Suspect]
     Active Substance: FENTANYL CITRATE
     Dosage: 3 TO 4
     Route: 048
  2. HYDROCODONE [Concomitant]
     Active Substance: HYDROCODONE
     Indication: PAIN
  3. ASPIRIN. [Concomitant]
     Active Substance: ASPIRIN
     Route: 061
  4. ACTIQ [Suspect]
     Active Substance: FENTANYL CITRATE
     Indication: COMPLEX REGIONAL PAIN SYNDROME
     Route: 048
  5. NEURONTIN [Concomitant]
     Active Substance: GABAPENTIN
     Indication: PAIN
  6. CELEBREX [Concomitant]
     Active Substance: CELECOXIB
     Indication: PAIN

REACTIONS (13)
  - Loss of consciousness [Unknown]
  - Executive dysfunction [Unknown]
  - Breast cancer [Not Recovered/Not Resolved]
  - Aphasia [Unknown]
  - Complex regional pain syndrome [Not Recovered/Not Resolved]
  - Burning sensation [Unknown]
  - Product use issue [Unknown]
  - Bedridden [Not Recovered/Not Resolved]
  - Somnolence [Unknown]
  - Malignant melanoma [Recovered/Resolved]
  - Brain neoplasm benign [Unknown]
  - Pain [Not Recovered/Not Resolved]
  - Therapy change [Not Recovered/Not Resolved]

NARRATIVE: CASE EVENT DATE: 2012
